FAERS Safety Report 10621175 (Version 1)
Quarter: 2014Q4

REPORT INFORMATION
  Report Type: Spontaneous
  Country: FR (occurrence: FR)
  Receive Date: 20141203
  Receipt Date: 20141203
  Transmission Date: 20150529
  Serious: Yes (Hospitalization)
  Sender: FDA-Public Use
  Company Number: FR-009507513-1412FRA000631

PATIENT
  Age: 38 Year
  Sex: Female

DRUGS (3)
  1. FUCIDINE [Suspect]
     Active Substance: FUSIDIC ACID
     Indication: ACARODERMATITIS
     Dosage: 1 DF, BID
     Route: 003
     Dates: start: 20140422, end: 20140512
  2. KESTIN [Suspect]
     Active Substance: EBASTINE
     Indication: PRURITUS
     Dosage: 2 DF, QD
     Route: 048
     Dates: start: 20140419, end: 20140428
  3. STROMECTOL [Suspect]
     Active Substance: IVERMECTIN
     Indication: ACARODERMATITIS
     Dosage: 4 TABLETS ON 15-APR-2014 AND 4 TABLETS ON 23-APR-2014
     Route: 048
     Dates: start: 20140415, end: 20140423

REACTIONS (3)
  - Pruritus [Recovered/Resolved]
  - Urticaria [Recovered/Resolved]
  - Eczema [Recovered/Resolved]

NARRATIVE: CASE EVENT DATE: 20140424
